FAERS Safety Report 4469132-6 (Version None)
Quarter: 2004Q4

REPORT INFORMATION
  Report Type: 
  Country: None (occurrence: None)
  Receive Date: 20041001
  Receipt Date: 20040917
  Transmission Date: 20050328
  Serious: Yes (Hospitalization)
  Sender: FDA-Public Use
  Company Number: 234773K04USA

PATIENT
  Age: 41 Year
  Sex: Male

DRUGS (3)
  1. REBIF [Suspect]
     Indication: MULTIPLE SCLEROSIS
     Dosage: 44 MCG
     Dates: start: 20030722, end: 20031101
  2. BACLOFEN [Concomitant]
  3. LIPITOR [Concomitant]

REACTIONS (11)
  - ANAEMIA [None]
  - CONSTIPATION [None]
  - FALL [None]
  - GASTROINTESTINAL DISORDER [None]
  - LABORATORY TEST ABNORMAL [None]
  - LEUKOPENIA [None]
  - MEDICATION ERROR [None]
  - MULTIPLE SCLEROSIS [None]
  - PARAESTHESIA [None]
  - PARANOIA [None]
  - URINARY TRACT INFECTION [None]
